FAERS Safety Report 9374353 (Version 2)
Quarter: 2013Q3

REPORT INFORMATION
  Report Type: Report from Study
  Country: CA (occurrence: CA)
  Receive Date: 20130628
  Receipt Date: 20130813
  Transmission Date: 20140515
  Serious: Yes (Other)
  Sender: FDA-Public Use
  Company Number: PHHY2013CA066192

PATIENT
  Age: 42 Year
  Sex: Male

DRUGS (1)
  1. GILENYA [Suspect]
     Indication: RELAPSING-REMITTING MULTIPLE SCLEROSIS
     Dosage: 0.5 MG, QD
     Route: 048
     Dates: start: 20110916

REACTIONS (2)
  - Blood cholesterol increased [Unknown]
  - Low density lipoprotein increased [Unknown]
